FAERS Safety Report 19625150 (Version 2)
Quarter: 2021Q3

REPORT INFORMATION
  Report Type: Spontaneous
  Country: IE (occurrence: IE)
  Receive Date: 20210729
  Receipt Date: 20210809
  Transmission Date: 20211014
  Serious: Yes (Other)
  Sender: FDA-Public Use
  Company Number: IE-NOVOPROD-821779

PATIENT
  Age: 85 Year
  Sex: Male
  Weight: 97.06 kg

DRUGS (3)
  1. OZEMPIC [Suspect]
     Active Substance: SEMAGLUTIDE
     Indication: WEIGHT CONTROL
     Dosage: 0.25 MG, QW
     Route: 065
     Dates: start: 20210514
  2. OZEMPIC [Suspect]
     Active Substance: SEMAGLUTIDE
     Dosage: 0.5 MG, QW
     Route: 065
     Dates: start: 20210604, end: 20210702
  3. BETAHISTINE [Concomitant]
     Active Substance: BETAHISTINE
     Indication: BALANCE DISORDER
     Dosage: 16.00 MG
     Route: 065

REACTIONS (8)
  - Abdominal distension [Recovered/Resolved]
  - Product use in unapproved indication [Unknown]
  - Dry mouth [Recovered/Resolved]
  - Dizziness [Not Recovered/Not Resolved]
  - Wrong technique in product usage process [Recovered/Resolved]
  - Decreased appetite [Recovered/Resolved]
  - Constipation [Recovered/Resolved]
  - Fatigue [Recovered/Resolved]

NARRATIVE: CASE EVENT DATE: 20210514
